FAERS Safety Report 20053550 (Version 3)
Quarter: 2021Q4

REPORT INFORMATION
  Report Type: Report from Study
  Country: DE (occurrence: DE)
  Receive Date: 20211110
  Receipt Date: 20211223
  Transmission Date: 20220304
  Serious: Yes (Hospitalization)
  Sender: FDA-Public Use
  Company Number: DE-TAKEDA-2021TUS069167

PATIENT
  Age: 33 Year
  Sex: Female

DRUGS (25)
  1. TEDUGLUTIDE [Suspect]
     Active Substance: TEDUGLUTIDE
     Indication: Short-bowel syndrome
     Dosage: 3.2 MILLIGRAM, 1/WEEK
     Route: 065
     Dates: start: 20200511, end: 202102
  2. TEDUGLUTIDE [Suspect]
     Active Substance: TEDUGLUTIDE
     Indication: Short-bowel syndrome
     Dosage: 3.2 MILLIGRAM, 1/WEEK
     Route: 065
     Dates: start: 20200511, end: 202102
  3. TEDUGLUTIDE [Suspect]
     Active Substance: TEDUGLUTIDE
     Indication: Short-bowel syndrome
     Dosage: 3.2 MILLIGRAM, 1/WEEK
     Route: 065
     Dates: start: 20200511, end: 202102
  4. TEDUGLUTIDE [Suspect]
     Active Substance: TEDUGLUTIDE
     Indication: Short-bowel syndrome
     Dosage: 3.2 MILLIGRAM, 1/WEEK
     Route: 065
     Dates: start: 20200511, end: 202102
  5. TEDUGLUTIDE [Suspect]
     Active Substance: TEDUGLUTIDE
     Dosage: 3 MILLIGRAM
     Route: 065
     Dates: start: 202102, end: 202105
  6. TEDUGLUTIDE [Suspect]
     Active Substance: TEDUGLUTIDE
     Dosage: 3 MILLIGRAM
     Route: 065
     Dates: start: 202102, end: 202105
  7. TEDUGLUTIDE [Suspect]
     Active Substance: TEDUGLUTIDE
     Dosage: 3 MILLIGRAM
     Route: 065
     Dates: start: 202102, end: 202105
  8. TEDUGLUTIDE [Suspect]
     Active Substance: TEDUGLUTIDE
     Dosage: 3 MILLIGRAM
     Route: 065
     Dates: start: 202102, end: 202105
  9. TEDUGLUTIDE [Suspect]
     Active Substance: TEDUGLUTIDE
     Dosage: 2.8 MILLIGRAM, 1/WEEK
     Route: 065
     Dates: start: 202105, end: 202111
  10. TEDUGLUTIDE [Suspect]
     Active Substance: TEDUGLUTIDE
     Dosage: 2.8 MILLIGRAM, 1/WEEK
     Route: 065
     Dates: start: 202105, end: 202111
  11. TEDUGLUTIDE [Suspect]
     Active Substance: TEDUGLUTIDE
     Dosage: 2.8 MILLIGRAM, 1/WEEK
     Route: 065
     Dates: start: 202105, end: 202111
  12. TEDUGLUTIDE [Suspect]
     Active Substance: TEDUGLUTIDE
     Dosage: 2.8 MILLIGRAM, 1/WEEK
     Route: 065
     Dates: start: 202105, end: 202111
  13. TEDUGLUTIDE [Suspect]
     Active Substance: TEDUGLUTIDE
     Dosage: 2.6 MILLIGRAM, 1/WEEK
     Route: 065
     Dates: start: 202111
  14. TEDUGLUTIDE [Suspect]
     Active Substance: TEDUGLUTIDE
     Dosage: 2.6 MILLIGRAM, 1/WEEK
     Route: 065
     Dates: start: 202111
  15. TEDUGLUTIDE [Suspect]
     Active Substance: TEDUGLUTIDE
     Dosage: 2.6 MILLIGRAM, 1/WEEK
     Route: 065
     Dates: start: 202111
  16. TEDUGLUTIDE [Suspect]
     Active Substance: TEDUGLUTIDE
     Dosage: 2.6 MILLIGRAM, 1/WEEK
     Route: 065
     Dates: start: 202111
  17. MORPHINE SULFATE [Concomitant]
     Active Substance: MORPHINE SULFATE
     Indication: Pain
     Dosage: 10 MILLIGRAM, PRN
     Route: 030
  18. MEPERIDINE [Concomitant]
     Active Substance: MEPERIDINE
     Indication: Pain
     Dosage: 100 MILLIGRAM, PRN
     Route: 030
  19. METAMIZOLE [Concomitant]
     Active Substance: METAMIZOLE
     Indication: Short-bowel syndrome
     Dosage: 1 UNK, PRN
     Route: 048
  20. VITAMIN B12 [Concomitant]
     Active Substance: CYANOCOBALAMIN
     Indication: Short-bowel syndrome
     Dosage: 1 UNK, MONTHLY
     Route: 030
  21. PROGESTERONE [Concomitant]
     Active Substance: PROGESTERONE
     Indication: Adenoidectomy
     Dosage: 1 UNK, QD
     Route: 048
     Dates: start: 202110
  22. Mucofalk [Concomitant]
     Indication: Short-bowel syndrome
     Dosage: 5 GRAM, TID
     Route: 048
     Dates: start: 20211103
  23. ESTRADIOL [Concomitant]
     Active Substance: ESTRADIOL
     Indication: Adenoidectomy
     Dosage: 3.06 MILLIGRAM, QD
     Route: 062
  24. IMODIUM N [Concomitant]
     Indication: Short-bowel syndrome
     Dosage: 2 MILLIGRAM, BID
     Route: 048
     Dates: start: 20211105
  25. PANTOZAL [Concomitant]
     Indication: Short-bowel syndrome
     Dosage: 40 MILLIGRAM, QD
     Route: 042
     Dates: start: 202108

REACTIONS (3)
  - Abdominal adhesions [Recovered/Resolved]
  - Catheter site pain [Recovered/Resolved]
  - Headache [Recovered/Resolved]

NARRATIVE: CASE EVENT DATE: 20210901
